FAERS Safety Report 11353119 (Version 2)
Quarter: 2015Q4

REPORT INFORMATION
  Report Type: Spontaneous
  Country: US (occurrence: US)
  Receive Date: 20150807
  Receipt Date: 20151218
  Transmission Date: 20160304
  Serious: No
  Sender: FDA-Public Use
  Company Number: US-JNJFOC-20141217987

PATIENT
  Age: 38 Year
  Sex: Female
  Weight: 51.71 kg

DRUGS (3)
  1. WOMENS ROGAINE EXTRA STRENGTH [Suspect]
     Active Substance: MINOXIDIL
     Indication: ALOPECIA
     Dosage: A LITTLE BIT, FOR TWO DAYS
     Route: 061
     Dates: start: 20141219, end: 20141220
  2. WOMENS ROGAINE EXTRA STRENGTH [Suspect]
     Active Substance: MINOXIDIL
     Route: 061
  3. TOPICAL STEROID [Concomitant]
     Indication: HYPERAESTHESIA
     Dosage: 1-2 TIMES, MANY YEARS
     Route: 061

REACTIONS (1)
  - Alopecia [Recovered/Resolved]

NARRATIVE: CASE EVENT DATE: 20141221
